FAERS Safety Report 14542008 (Version 1)
Quarter: 2018Q1

REPORT INFORMATION
  Report Type: Spontaneous
  Country: US (occurrence: US)
  Receive Date: 20180216
  Receipt Date: 20180216
  Transmission Date: 20180509
  Serious: Yes (Hospitalization)
  Sender: FDA-Public Use
  Company Number: US-OTSUKA-DJ20122140

PATIENT

DRUGS (1)
  1. ABILIFY [Suspect]
     Active Substance: ARIPIPRAZOLE
     Route: 065

REACTIONS (6)
  - Dry skin [Unknown]
  - Memory impairment [Unknown]
  - Confusional state [Unknown]
  - Hallucination [Unknown]
  - Balance disorder [Unknown]
  - Thinking abnormal [Unknown]
